FAERS Safety Report 25766810 (Version 1)
Quarter: 2025Q3

REPORT INFORMATION
  Report Type: Spontaneous
  Country: US (occurrence: US)
  Receive Date: 20250905
  Receipt Date: 20250905
  Transmission Date: 20251021
  Serious: Yes (Hospitalization)
  Sender: DR REDDYS
  Company Number: US-DRL-USA-USA/2025/09/013492

PATIENT
  Age: 16 Year
  Sex: Male
  Weight: 38.4 kg

DRUGS (3)
  1. EPHEDRINE [Suspect]
     Active Substance: EPHEDRINE
     Indication: Anaphylactic reaction
  2. PHENYLEPHRINE [Suspect]
     Active Substance: PHENYLEPHRINE
     Indication: Anaphylactic reaction
  3. CALCIUM CHLORIDE [Concomitant]
     Active Substance: CALCIUM CHLORIDE
     Indication: Anaphylactic reaction

REACTIONS (1)
  - Drug ineffective [Unknown]
